FAERS Safety Report 21006903 (Version 1)
Quarter: 2022Q2

REPORT INFORMATION
  Report Type: Spontaneous
  Country: US (occurrence: US)
  Receive Date: 20220625
  Receipt Date: 20220625
  Transmission Date: 20220720
  Serious: No
  Sender: FDA-Public Use
  Company Number: US-BRISTOL-MYERS SQUIBB COMPANY-2022-057515

PATIENT
  Age: 35 Year
  Sex: Male
  Weight: 67.3 kg

DRUGS (1)
  1. REVLIMID [Suspect]
     Active Substance: LENALIDOMIDE
     Indication: Hodgkin^s disease
     Dosage: FREQ: 21 DAYS ON, 7 DAYS OFF
     Route: 048

REACTIONS (1)
  - Intentional product use issue [Unknown]
